FAERS Safety Report 8493322-9 (Version None)
Quarter: 2012Q2

REPORT INFORMATION
  Report Type: 
  Country: None (occurrence: None)
  Receive Date: 20120402
  Receipt Date: 20091008
  Transmission Date: 20120825
  Serious: Yes (Other)
  Sender: FDA-Public Use
  Company Number: PHEH2009US13481

PATIENT

DRUGS (2)
  1. EXFORGE [Suspect]
  2. TEKTURNA [Suspect]

REACTIONS (2)
  - DYSPNOEA [None]
  - GENERALISED OEDEMA [None]
